FAERS Safety Report 5974117-4 (Version None)
Quarter: 2008Q4

REPORT INFORMATION
  Report Type: 
  Country: None (occurrence: None)
  Receive Date: 20081201
  Receipt Date: 20081125
  Transmission Date: 20090506
  Serious: Yes (Other)
  Sender: FDA-Public Use
  Company Number: GB-PFIZER INC-2008100216

PATIENT
  Age: 42 Year
  Sex: Male

DRUGS (7)
  1. AMLODIPINE [Suspect]
  2. ATORVASTATIN CALCIUM [Suspect]
  3. BENDROFLUMETHIAZIDE [Suspect]
  4. GLICLAZIDE [Suspect]
  5. METFORMIN HCL [Suspect]
  6. RAMIPRIL [Suspect]
  7. ALBUTEROL SULFATE [Suspect]

REACTIONS (2)
  - DIABETES MELLITUS INADEQUATE CONTROL [None]
  - OBESITY [None]
